FAERS Safety Report 23966894 (Version 1)
Quarter: 2024Q2

REPORT INFORMATION
  Report Type: Spontaneous
  Country: BR (occurrence: BR)
  Receive Date: 20240612
  Receipt Date: 20240612
  Transmission Date: 20240716
  Serious: Yes (Hospitalization, Other)
  Sender: FDA-Public Use
  Company Number: BR-SA-SAC20230726000037

PATIENT

DRUGS (12)
  1. SABRIL [Suspect]
     Active Substance: VIGABATRIN
     Indication: Hyperglycinaemia
     Dosage: 2 DF, BID (2 IN THE MORNING AND 2 IN THE EVENING)
     Dates: start: 2021
  2. SABRIL [Suspect]
     Active Substance: VIGABATRIN
     Dosage: 2 DF, TID
  3. SABRIL [Suspect]
     Active Substance: VIGABATRIN
  4. SABRIL [Suspect]
     Active Substance: VIGABATRIN
     Indication: Seizure
  5. SABRIL [Suspect]
     Active Substance: VIGABATRIN
     Indication: Infantile spasms
  6. OXCARBAZEPINE [Concomitant]
     Active Substance: OXCARBAZEPINE
     Dosage: 2 DF, Q12H
  7. OXCARBAZEPINE [Concomitant]
     Active Substance: OXCARBAZEPINE
     Indication: Infantile spasms
  8. PHENOBARBITAL [Concomitant]
     Active Substance: PHENOBARBITAL
     Dosage: 2 DF, Q12H
  9. PHENOBARBITAL [Concomitant]
     Active Substance: PHENOBARBITAL
     Indication: Seizure
  10. LEVETIRACETAM [Concomitant]
     Active Substance: LEVETIRACETAM
     Indication: Epilepsy
     Dosage: 2 DF, BID
  11. LEVETIRACETAM [Concomitant]
     Active Substance: LEVETIRACETAM
     Indication: Seizure
  12. LEVETIRACETAM [Concomitant]
     Active Substance: LEVETIRACETAM
     Indication: Seizure

REACTIONS (16)
  - Muscle spasms [Recovering/Resolving]
  - Hypotonia [Recovering/Resolving]
  - Heart rate increased [Recovering/Resolving]
  - Apnoea [Recovering/Resolving]
  - Condition aggravated [Recovering/Resolving]
  - Oxygen saturation decreased [Recovering/Resolving]
  - Seizure [Recovering/Resolving]
  - Product contamination [Recovering/Resolving]
  - Tremor [Recovering/Resolving]
  - Somnolence [Not Recovered/Not Resolved]
  - Asthenia [Unknown]
  - Dyspnoea [Recovering/Resolving]
  - Vomiting [Unknown]
  - Respiratory failure [Recovering/Resolving]
  - Cough [Not Recovered/Not Resolved]
  - Stress [Unknown]

NARRATIVE: CASE EVENT DATE: 20230101
